FAERS Safety Report 8780726 (Version 7)
Quarter: 2013Q3

REPORT INFORMATION
  Report Type: Report from Study
  Country: JP (occurrence: JP)
  Receive Date: 20120913
  Receipt Date: 20130912
  Transmission Date: 20140515
  Serious: Yes (Life-Threatening, Hospitalization)
  Sender: FDA-Public Use
  Company Number: JP-UCBSA-065637

PATIENT
  Age: 68 Year
  Sex: Male

DRUGS (10)
  1. CERTOLIZUMAB PEGOL [Suspect]
     Indication: RHEUMATOID ARTHRITIS
     Route: 058
     Dates: start: 20100624, end: 20120816
  2. CERTOLIZUMAB PEGOL [Suspect]
     Indication: RHEUMATOID ARTHRITIS
     Route: 058
  3. CERTOLIZUMAB PEGOL [Suspect]
     Indication: RHEUMATOID ARTHRITIS
     Route: 058
  4. SALAZOSULFAPYRIDINE [Concomitant]
  5. LANSOPRAZOLE [Concomitant]
  6. PREDNISOLONE [Concomitant]
  7. MELOXICAM [Concomitant]
  8. SODIUM GUALENATE HYDRATE I GLUTAMINE [Concomitant]
  9. SODIUM RISEDRONATE HYDRATE [Concomitant]
  10. EPERISONE HYDROCHLORIDE [Concomitant]

REACTIONS (2)
  - Aortic dissection [Recovered/Resolved]
  - Aortic aneurysm [Recovered/Resolved]
